FAERS Safety Report 4763689-3 (Version None)
Quarter: 2005Q3

REPORT INFORMATION
  Report Type: 
  Country: None (occurrence: None)
  Receive Date: 20050908
  Receipt Date: 20050901
  Transmission Date: 20060218
  Serious: Yes (Life-Threatening, Hospitalization, Other)
  Sender: FDA-Public Use
  Company Number: US-GLAXOSMITHKLINE-A0572998A

PATIENT
  Sex: Male

DRUGS (3)
  1. EPZICOM [Suspect]
     Indication: HIV INFECTION
     Dosage: 1TAB PER DAY
     Route: 048
  2. ATAZANAVIR [Concomitant]
  3. KALETRA [Concomitant]

REACTIONS (2)
  - BLOOD CREATININE INCREASED [None]
  - PSEUDOMONAL SEPSIS [None]
